FAERS Safety Report 10650946 (Version 1)
Quarter: 2014Q4

REPORT INFORMATION
  Report Type: Report from Study
  Country: JP (occurrence: JP)
  Receive Date: 20141215
  Receipt Date: 20141215
  Transmission Date: 20150529
  Serious: Yes (Other)
  Sender: FDA-Public Use
  Company Number: JP-AMGEN-JPNNI2014096316

PATIENT
  Sex: Male
  Weight: 39 kg

DRUGS (3)
  1. MOHRUS [Concomitant]
     Active Substance: KETOPROFEN
     Dosage: 800 MG, QD
     Route: 050
     Dates: start: 20141001
  2. DENOTAS [Concomitant]
     Active Substance: CALCIUM CARBONATE\CHOLECALCIFEROL\MAGNESIUM CARBONATE
     Dosage: 2 DF, QD
     Route: 048
     Dates: start: 20140129
  3. DENOSUMAB [Suspect]
     Active Substance: DENOSUMAB
     Indication: OSTEOPOROSIS
     Dosage: 60 MG, 2014/1/29, 7/9
     Route: 058
     Dates: start: 20140129

REACTIONS (1)
  - Spinal fracture [Not Recovered/Not Resolved]

NARRATIVE: CASE EVENT DATE: 20140806
